FAERS Safety Report 22210078 (Version 1)
Quarter: 2023Q2

REPORT INFORMATION
  Report Type: Report from Study
  Country: TW (occurrence: TW)
  Receive Date: 20230414
  Receipt Date: 20230414
  Transmission Date: 20230722
  Serious: Yes (Life-Threatening, Hospitalization)
  Sender: FDA-Public Use
  Company Number: TW-JNJFOC-20230428061

PATIENT
  Age: 77 Year
  Sex: Female

DRUGS (1)
  1. SIMPONI [Suspect]
     Active Substance: GOLIMUMAB
     Indication: Rheumatoid arthritis
     Dosage: LAST ADMINISTRATION DATE WAS ON 15-MAR-2023
     Route: 058
     Dates: start: 20190717

REACTIONS (4)
  - Sepsis [Not Recovered/Not Resolved]
  - Urinary tract infection [Unknown]
  - Respiratory failure [Not Recovered/Not Resolved]
  - Acute kidney injury [Unknown]

NARRATIVE: CASE EVENT DATE: 20230401
